FAERS Safety Report 19808091 (Version 1)
Quarter: 2021Q3

REPORT INFORMATION
  Report Type: Other
  Country: US (occurrence: US)
  Receive Date: 20210908
  Receipt Date: 20210908
  Transmission Date: 20211014
  Serious: Yes (Hospitalization)
  Sender: FDA-Public Use
  Company Number: US-INVATECH-000137

PATIENT
  Age: 70 Year
  Sex: Female

DRUGS (3)
  1. IMMUNOGLOBULIN (IVIG) [Suspect]
     Active Substance: HUMAN IMMUNOGLOBULIN G
     Indication: MYASTHENIA GRAVIS CRISIS
     Dosage: 0.4 GM/KG/DAY (FIVE?DAY COURSE)
     Route: 042
  2. PREDNISONE. [Suspect]
     Active Substance: PREDNISONE
     Indication: MYASTHENIA GRAVIS CRISIS
     Dosage: 90 MG DAILY
  3. PYRIDOSTIGMINE [Suspect]
     Active Substance: PYRIDOSTIGMINE
     Indication: MYASTHENIA GRAVIS CRISIS
     Dosage: 60 MG FOUR TIMES A DAY

REACTIONS (3)
  - Drug resistance [Unknown]
  - Respiration abnormal [Recovered/Resolved]
  - Condition aggravated [Recovered/Resolved]
